FAERS Safety Report 4895412-6 (Version None)
Quarter: 2006Q1

REPORT INFORMATION
  Report Type: 
  Country: None (occurrence: None)
  Receive Date: 20060130
  Receipt Date: 20050803
  Transmission Date: 20060701
  Serious: Yes (Other)
  Sender: FDA-Public Use
  Company Number: US-GLAXOSMITHKLINE-A0568824A

PATIENT
  Age: 28 Year
  Sex: Female

DRUGS (2)
  1. COMBIVIR [Suspect]
     Indication: ANTIVIRAL PROPHYLAXIS
     Dosage: 1TAB TWICE PER DAY
     Route: 048
     Dates: start: 20050716, end: 20050801
  2. NO CONCURRENT MEDICATION [Concomitant]

REACTIONS (4)
  - HEADACHE [None]
  - NAUSEA [None]
  - NEUTROPENIA [None]
  - VOMITING [None]
